FAERS Safety Report 7031933-8 (Version None)
Quarter: 2010Q4

REPORT INFORMATION
  Report Type: 
  Country: None (occurrence: None)
  Receive Date: 20101001
  Receipt Date: 20100923
  Transmission Date: 20110411
  Serious: Yes (Death)
  Sender: FDA-Public Use
  Company Number: 2010MA001116

PATIENT
  Age: 76 Year
  Sex: Female

DRUGS (18)
  1. METFORMIN HYDROCHLORIDE [Suspect]
     Dosage: ; PO
     Route: 048
     Dates: start: 20100209, end: 20100209
  2. QUININE SULFATE [Suspect]
     Dosage: ; PO
     Route: 048
     Dates: start: 20100209, end: 20100210
  3. ADCAL-D3 [Concomitant]
  4. ALENDRONIC ACID [Concomitant]
  5. AMLODIPINE [Concomitant]
  6. ACETYLSALICYLIC ACID SRT [Concomitant]
  7. ATORVASTATIN [Concomitant]
  8. BISOPROLOL [Concomitant]
  9. FERROUS SULFATE [Concomitant]
  10. IBUPROFEN [Concomitant]
  11. ISOSORIDE MONONITRATE [Concomitant]
  12. LEVOTHYROXINE SODIUM [Concomitant]
  13. PRILOSEC [Concomitant]
  14. NITROGLYCERIN [Concomitant]
  15. TEMAZEPAM [Concomitant]
  16. PARACETAMOL [Concomitant]
  17. OMEPRAZOLE [Concomitant]
  18. VITAMIN D [Concomitant]

REACTIONS (10)
  - CARDIAC ARREST [None]
  - CINCHONISM [None]
  - HEPATIC CONGESTION [None]
  - HYPOGLYCAEMIA [None]
  - INTENTIONAL DRUG MISUSE [None]
  - OEDEMA PERIPHERAL [None]
  - PULMONARY CONGESTION [None]
  - PULMONARY OEDEMA [None]
  - SELF-MEDICATION [None]
  - SUDDEN CARDIAC DEATH [None]
